FAERS Safety Report 8075309-3 (Version None)
Quarter: 2012Q1

REPORT INFORMATION
  Report Type: 
  Country: None (occurrence: None)
  Receive Date: 20120127
  Receipt Date: 20120116
  Transmission Date: 20120608
  Serious: Yes (Hospitalization)
  Sender: FDA-Public Use
  Company Number: US-ELI_LILLY_AND_COMPANY-US201111008958

PATIENT
  Sex: Female

DRUGS (17)
  1. FORTEO [Suspect]
     Dosage: 20 UG, QD
  2. AMITRIPTYLINE HCL [Concomitant]
  3. PRAVASTATIN SODIUM [Concomitant]
     Dosage: 20 MG, UNKNOWN
  4. PREDNISONE [Concomitant]
  5. CYMBALTA [Concomitant]
     Indication: ARTHRITIS
     Dosage: 60 MG, QD
     Dates: start: 20111001
  6. LISINOPRIL [Concomitant]
  7. TICAGRELOR [Concomitant]
  8. FORTEO [Suspect]
     Indication: OSTEOPOROSIS
     Dosage: 20 UG, QD
     Dates: start: 20110901
  9. THYROID TAB [Concomitant]
  10. SPIRIVA [Concomitant]
  11. ANTIHYPERTENSIVES [Concomitant]
  12. FORTEO [Suspect]
     Dosage: 20 UG, QD
  13. DIFLUNISAL [Concomitant]
  14. CALCIUM [Concomitant]
  15. LEXAPRO [Concomitant]
     Dosage: 10 MG, QD
  16. ATENOLOL [Concomitant]
  17. VITAMIN D [Concomitant]

REACTIONS (7)
  - RESPIRATORY DISORDER [None]
  - DRUG DOSE OMISSION [None]
  - STENT PLACEMENT [None]
  - PNEUMONIA [None]
  - HEADACHE [None]
  - MALAISE [None]
  - DECREASED ACTIVITY [None]
